FAERS Safety Report 17446887 (Version 2)
Quarter: 2020Q1

REPORT INFORMATION
  Report Type: Spontaneous
  Country: PT (occurrence: PT)
  Receive Date: 20200221
  Receipt Date: 20200228
  Transmission Date: 20200409
  Serious: Yes (Other)
  Sender: FDA-Public Use
  Company Number: PT-009507513-2002PRT006767

PATIENT
  Age: 64 Year

DRUGS (10)
  1. BROMAZEPAM [Concomitant]
     Active Substance: BROMAZEPAM
     Dosage: 1 TB [TABLET] AT BEDTIME
  2. ALPRAZOLAM. [Concomitant]
     Active Substance: ALPRAZOLAM
     Dosage: 1 TB [TABLET] AT BREAKFAST AND 1 TB AT LUNCH
  3. ELIQUIS [Concomitant]
     Active Substance: APIXABAN
     Dosage: 1 TB [TABLET] AT BREAKFAST AND 1 TB AT DINNER
  4. BINOSTO [Suspect]
     Active Substance: ALENDRONATE SODIUM
     Indication: OSTEOPOROSIS
     Dosage: 1 TB [TABLET] WEEKLY. ONLY DID 1 TABLET
     Route: 048
     Dates: start: 20200120, end: 20200120
  5. AMIODARONE [Concomitant]
     Active Substance: AMIODARONE
     Dosage: 1 TB [TABLET] DAILY
  6. ALENDRONATE SODIUM. [Suspect]
     Active Substance: ALENDRONATE SODIUM
     Dosage: 1 TB [TABLET] WEEKLY
     Route: 048
     Dates: start: 20200120, end: 20200120
  7. LEVOTHYROXINE SODIUM. [Concomitant]
     Active Substance: LEVOTHYROXINE SODIUM
     Indication: HYPOTHYROIDISM
     Dosage: 0.1 MG AT BREAKFAST
  8. PANTOPRAZOLE [Concomitant]
     Active Substance: PANTOPRAZOLE
     Dosage: 40 MG FASTING
  9. FUROSEMIDE. [Concomitant]
     Active Substance: FUROSEMIDE
     Dosage: ? TB [TABLET] AT BREAKFAST
  10. IRBESARTAN. [Concomitant]
     Active Substance: IRBESARTAN
     Dosage: UNK

REACTIONS (2)
  - Myalgia [Recovered/Resolved]
  - Cough [Recovered/Resolved]

NARRATIVE: CASE EVENT DATE: 20200120
